FAERS Safety Report 14879249 (Version 1)
Quarter: 2018Q2

REPORT INFORMATION
  Report Type: Spontaneous
  Country: US (occurrence: US)
  Receive Date: 20180511
  Receipt Date: 20180511
  Transmission Date: 20180711
  Serious: Yes (Death, Other)
  Sender: FDA-Public Use
  Company Number: US-CIPLA LTD.-2018US16830

PATIENT

DRUGS (4)
  1. DEXAMETHASONE                      /00016002/ [Suspect]
     Active Substance: DEXAMETHASONE SODIUM PHOSPHATE
     Indication: ANAPLASTIC ASTROCYTOMA
     Dosage: UNK
     Route: 065
  2. DEXAMETHASONE                      /00016002/ [Suspect]
     Active Substance: DEXAMETHASONE SODIUM PHOSPHATE
     Dosage: UNK, DOSE INCREASED
     Route: 065
  3. TOPOTECAN [Suspect]
     Active Substance: TOPOTECAN HYDROCHLORIDE
     Dosage: UNK, 0.02 ML/HR FROM EACH CATHETER, BUT WITH HALF THE CONCENTRATION (AT 0.0334 MG/ML)
  4. TOPOTECAN [Suspect]
     Active Substance: TOPOTECAN HYDROCHLORIDE
     Indication: ANAPLASTIC ASTROCYTOMA
     Dosage: UNK, AT A CONCENTRATION OF 0.0667 MG/ML AND A RATE OF 0.06 ML/HR THROUGH EACH CATHETER

REACTIONS (3)
  - Condition aggravated [Unknown]
  - Neoplasm progression [Fatal]
  - Product use in unapproved indication [Unknown]
